FAERS Safety Report 9672132 (Version 1)
Quarter: 2013Q4

REPORT INFORMATION
  Report Type: Spontaneous
  Country: GB (occurrence: GB)
  Receive Date: 20131106
  Receipt Date: 20131106
  Transmission Date: 20140711
  Serious: Yes (Death, Disabling, Other)
  Sender: FDA-Public Use
  Company Number: PHFR2013GB006210

PATIENT
  Age: 73 Year
  Sex: Male

DRUGS (12)
  1. ZOMETA [Suspect]
     Indication: BONE PAIN
     Dosage: 4 MG, MONTHLY
     Route: 042
  2. ZOMETA [Suspect]
     Indication: MUSCULOSKELETAL DISORDER
  3. PAMIDRONATE [Suspect]
     Indication: BONE PAIN
     Dosage: 90 MG, QMO
     Route: 042
  4. PAMIDRONATE [Suspect]
     Indication: MUSCULOSKELETAL DISORDER
  5. OXYCODONE [Concomitant]
     Dosage: 200 MG, BID
  6. GABAPENTIN [Concomitant]
     Dosage: UNK UKN, UNK
  7. FUROSEMIDE [Concomitant]
     Dosage: 40 MG, QD
  8. OMEPRAZOLE [Concomitant]
     Dosage: 20 MG, QD
  9. METOCLOPRAMIDE [Concomitant]
     Dosage: 10 MG, TID
  10. PARACETAMOL [Concomitant]
     Dosage: 1 G, TID
  11. DEXAMETHASONE [Concomitant]
     Dosage: 4 MG, QD
  12. CLEXANE [Concomitant]
     Dosage: UNK UKN, UNK

REACTIONS (3)
  - Death [Fatal]
  - Osteonecrosis of jaw [Unknown]
  - Exposed bone in jaw [Unknown]
